FAERS Safety Report 19780523 (Version 1)
Quarter: 2021Q3

REPORT INFORMATION
  Report Type: Report from Study
  Country: ES (occurrence: ES)
  Receive Date: 20210902
  Receipt Date: 20210902
  Transmission Date: 20211014
  Serious: Yes (Death, Hospitalization, Other)
  Sender: FDA-Public Use
  Company Number: ES-BRISTOL-MYERS SQUIBB COMPANY-BMS-2021-083960

PATIENT
  Age: 68 Year
  Sex: Male
  Weight: 86 kg

DRUGS (4)
  1. DEXAMETHASONE. [Concomitant]
     Active Substance: DEXAMETHASONE
     Indication: CERVICAL CORD COMPRESSION
     Dosage: 20 MILLIGRAM, QD
     Route: 042
     Dates: start: 20210804
  2. NIVOLUMAB [Suspect]
     Active Substance: NIVOLUMAB
     Indication: NEOPLASM MALIGNANT
     Dosage: 480 MILLIGRAM, Q4WK
     Route: 041
     Dates: start: 20210714, end: 20210714
  3. PULRODEMSTAT BESILATE. [Suspect]
     Active Substance: PULRODEMSTAT BESILATE
     Indication: NEOPLASM MALIGNANT
     Dosage: 40 MILLIGRAM, QWK
     Route: 048
     Dates: start: 20210714
  4. DEXAMETHASONE. [Concomitant]
     Active Substance: DEXAMETHASONE
     Indication: CERVICAL CORD COMPRESSION
     Dosage: 4 MILLIGRAM, TID
     Route: 048
     Dates: start: 20210804

REACTIONS (4)
  - Blood bilirubin increased [Recovering/Resolving]
  - Alanine aminotransferase increased [Unknown]
  - Aspartate aminotransferase increased [Unknown]
  - Death [Fatal]

NARRATIVE: CASE EVENT DATE: 20210820
